FAERS Safety Report 6665126-0 (Version None)
Quarter: 2010Q2

REPORT INFORMATION
  Report Type: 
  Country: None (occurrence: None)
  Receive Date: 20100402
  Receipt Date: 20100325
  Transmission Date: 20101027
  Serious: Yes (Hospitalization)
  Sender: FDA-Public Use
  Company Number: NL-TEVA-228994ISR

PATIENT
  Sex: Male
  Weight: 52 kg

DRUGS (1)
  1. DOXYCYCLINE [Suspect]

REACTIONS (1)
  - PANCREATITIS [None]
